FAERS Safety Report 10696738 (Version 3)
Quarter: 2015Q1

REPORT INFORMATION
  Report Type: Report from Study
  Country: IN (occurrence: IN)
  Receive Date: 20150108
  Receipt Date: 20150213
  Transmission Date: 20150721
  Serious: Yes (Death)
  Sender: FDA-Public Use
  Company Number: IN-ROCHE-1517150

PATIENT
  Age: 54 Year
  Sex: Male

DRUGS (8)
  1. GRAFEEL [Concomitant]
     Route: 058
     Dates: start: 20140901
  2. CILNIDIPINE [Concomitant]
     Active Substance: CILNIDIPINE
     Route: 065
  3. DICLOFENAC SODIUM. [Concomitant]
     Active Substance: DICLOFENAC SODIUM
     Route: 061
     Dates: start: 20140828
  4. CALCIUM ACETATE. [Concomitant]
     Active Substance: CALCIUM ACETATE
     Dosage: 1 TAB THRICE A DAY
     Route: 065
  5. ESOMEPRAZOLE [Concomitant]
     Active Substance: ESOMEPRAZOLE
     Route: 065
  6. EXXURA [Suspect]
     Active Substance: PEGINTERFERON ALFA-2A
     Route: 058
  7. EXXURA [Suspect]
     Active Substance: PEGINTERFERON ALFA-2A
     Indication: HEPATITIS C
     Route: 058
     Dates: start: 20140825, end: 20141006
  8. ONDEMET [Concomitant]
     Dosage: 4MG 1 TAB TDS
     Route: 065

REACTIONS (1)
  - Dyspnoea [Fatal]

NARRATIVE: CASE EVENT DATE: 20141127
